FAERS Safety Report 10871030 (Version 2)
Quarter: 2015Q1

REPORT INFORMATION
  Report Type: Spontaneous
  Country: AU (occurrence: AU)
  Receive Date: 20150226
  Receipt Date: 20150320
  Transmission Date: 20150721
  Serious: Yes (Disabling, Other)
  Sender: FDA-Public Use
  Company Number: AU-PFIZER INC-2015069332

PATIENT
  Age: 62 Year
  Sex: Female

DRUGS (1)
  1. SOMAC [Suspect]
     Active Substance: PANTOPRAZOLE SODIUM
     Indication: GASTROOESOPHAGEAL REFLUX DISEASE
     Dosage: 80 MG, UNK
     Route: 048
     Dates: end: 20150105

REACTIONS (7)
  - Lethargy [Unknown]
  - Hypertension [Unknown]
  - Overdose [Unknown]
  - Oedema peripheral [Unknown]
  - Anxiety [Unknown]
  - Mouth ulceration [Recovered/Resolved]
  - Condition aggravated [Recovered/Resolved]

NARRATIVE: CASE EVENT DATE: 2007
